FAERS Safety Report 20705310 (Version 1)
Quarter: 2022Q2

REPORT INFORMATION
  Report Type: Spontaneous
  Country: FR (occurrence: FR)
  Receive Date: 20220413
  Receipt Date: 20220413
  Transmission Date: 20220721
  Serious: Yes (Hospitalization, Other)
  Sender: FDA-Public Use
  Company Number: None

PATIENT
  Age: 64 Year
  Sex: Female
  Weight: 65 kg

DRUGS (7)
  1. PACLITAXEL [Suspect]
     Active Substance: PACLITAXEL
     Indication: Breast cancer female
     Dosage: 80 MG/M2, CYCLIC, (3 CYCLES)
     Dates: start: 20200515, end: 20200710
  2. EPIRUBICIN HYDROCHLORIDE [Suspect]
     Active Substance: EPIRUBICIN HYDROCHLORIDE
     Indication: Breast cancer female
     Dosage: 100 MG/M2, CYCLIC, (6 CYCLES)
     Route: 042
     Dates: start: 2009, end: 2009
  3. EPIRUBICIN HYDROCHLORIDE [Suspect]
     Active Substance: EPIRUBICIN HYDROCHLORIDE
     Dosage: 100 MG/M2, CYCLIC, (3 CYCLES)
     Route: 042
     Dates: start: 20200306, end: 20200424
  4. CYCLOPHOSPHAMIDE [Suspect]
     Active Substance: CYCLOPHOSPHAMIDE
     Indication: Breast cancer female
     Dosage: 500 MG/M2, CYCLIC, (6 CYCLES)
     Route: 042
     Dates: start: 2009, end: 2009
  5. CYCLOPHOSPHAMIDE [Suspect]
     Active Substance: CYCLOPHOSPHAMIDE
     Dosage: 500 MG/M2, CYCLIC, (3 CYCLES)
     Route: 042
     Dates: start: 20200306, end: 20200424
  6. VALPROMIDE [Concomitant]
     Active Substance: VALPROMIDE
  7. LETROZOLE [Concomitant]
     Active Substance: LETROZOLE
     Dates: start: 202009

REACTIONS (1)
  - Congestive cardiomyopathy [Not Recovered/Not Resolved]

NARRATIVE: CASE EVENT DATE: 20220101
